FAERS Safety Report 21777376 (Version 1)
Quarter: 2022Q4

REPORT INFORMATION
  Report Type: Spontaneous
  Country: PE (occurrence: PE)
  Receive Date: 20221226
  Receipt Date: 20221226
  Transmission Date: 20230113
  Serious: Yes (Other)
  Sender: FDA-Public Use
  Company Number: PE-PFIZER INC-PV202200100197

PATIENT
  Age: 72 Year
  Sex: Female

DRUGS (1)
  1. ENBREL [Suspect]
     Active Substance: ETANERCEPT
     Indication: Product used for unknown indication
     Dosage: UNK
     Route: 065

REACTIONS (13)
  - Intestinal obstruction [Unknown]
  - Pyelonephritis [Unknown]
  - Gastric infection [Unknown]
  - Gastritis [Recovering/Resolving]
  - Infection [Recovering/Resolving]
  - Constipation [Unknown]
  - Peripheral swelling [Unknown]
  - Hypertension [Unknown]
  - Influenza [Not Recovered/Not Resolved]
  - Productive cough [Unknown]
  - Pain [Unknown]
  - Decreased appetite [Unknown]
  - Weight decreased [Unknown]

NARRATIVE: CASE EVENT DATE: 20221001
